FAERS Safety Report 22007283 (Version 1)
Quarter: 2023Q1

REPORT INFORMATION
  Report Type: Spontaneous
  Country: GB (occurrence: GB)
  Receive Date: 20230217
  Receipt Date: 20230217
  Transmission Date: 20230417
  Serious: Yes (Other)
  Sender: FDA-Public Use
  Company Number: None

PATIENT
  Age: 36 Year
  Sex: Female
  Weight: 88 kg

DRUGS (13)
  1. AMOXICILLIN [Suspect]
     Active Substance: AMOXICILLIN
     Dates: start: 20230130
  2. COCODAMOL [Concomitant]
     Active Substance: ACETAMINOPHEN\CODEINE PHOSPHATE
     Dosage: TAKE 2 CAPSULES, 4 TIMES/DAY, PRN
     Dates: start: 20230113, end: 20230127
  3. ESOMEPRAZOLE [Concomitant]
     Active Substance: ESOMEPRAZOLE
     Dosage: TAKE ONCE OR TWICE DAILY
     Dates: start: 20230113
  4. FUSIDIC ACID [Concomitant]
     Active Substance: FUSIDIC ACID
     Dosage: APPLY 4 TIMES A DAY TO THE UMBILICUS FOR 7 DAYS
     Dates: start: 20221205, end: 20221212
  5. BUTYLSCOPOLAMINE BROMIDE [Concomitant]
     Active Substance: BUTYLSCOPOLAMINE BROMIDE
     Dosage: TAKE TWO WHEN REQUIRED UP TO FOUR TIMES DAILY
     Dates: start: 20221220, end: 20230103
  6. LANSOPRAZOLE [Concomitant]
     Active Substance: LANSOPRAZOLE
     Dates: start: 20220527
  7. MEBEVERINE HYDROCHLORIDE [Concomitant]
     Active Substance: MEBEVERINE HYDROCHLORIDE
     Dosage: ONE TO BE TAKEN 20 MINS BEFORE FOOD THREE TIMES...
     Dates: start: 20230112
  8. MOMETASONE [Concomitant]
     Active Substance: MOMETASONE
     Dosage: TWO SPRAYS DAILY
     Dates: start: 20221026
  9. PHENOXYMETHYLPENICILLIN. [Concomitant]
     Dates: start: 20221124, end: 20221129
  10. RAMIPRIL [Concomitant]
     Active Substance: RAMIPRIL
     Dates: start: 20220112
  11. ALBUTEROL [Concomitant]
     Active Substance: ALBUTEROL
     Dosage: INHALE 2 DOSES AS NEEDED
     Route: 055
     Dates: start: 20230125
  12. SERTRALINE [Concomitant]
     Active Substance: SERTRALINE HYDROCHLORIDE
     Dates: start: 20221111, end: 20221209
  13. SUMATRIPTAN [Concomitant]
     Active Substance: SUMATRIPTAN
     Dosage: TAKE ONE AS DIRECTED
     Dates: start: 20230130

REACTIONS (1)
  - Angioedema [Recovered/Resolved]
